FAERS Safety Report 6705707-9 (Version None)
Quarter: 2010Q2

REPORT INFORMATION
  Report Type: 
  Country: None (occurrence: None)
  Receive Date: 20100503
  Receipt Date: 20100420
  Transmission Date: 20101027
  Serious: Yes (Hospitalization, Other)
  Sender: FDA-Public Use
  Company Number: US-BAYER-201012375NA

PATIENT
  Age: 44 Year
  Sex: Female
  Weight: 86 kg

DRUGS (12)
  1. YASMIN [Suspect]
     Indication: CONTRACEPTION
     Route: 048
     Dates: start: 20010905
  2. YASMIN [Suspect]
     Route: 048
     Dates: start: 20020605
  3. YASMIN [Suspect]
     Route: 048
     Dates: start: 20050812
  4. YASMIN [Suspect]
     Route: 048
     Dates: start: 20071224
  5. YASMIN [Suspect]
     Route: 048
     Dates: start: 20090306
  6. YASMIN [Suspect]
     Route: 048
     Dates: start: 20060807
  7. YASMIN [Suspect]
     Route: 048
     Dates: start: 20080418
  8. YASMIN [Suspect]
     Route: 048
     Dates: start: 20090629
  9. OCELLA [Suspect]
     Indication: CONTRACEPTION
     Route: 048
     Dates: start: 20090306, end: 20090629
  10. SEROQUEL [Concomitant]
     Indication: DRUG USE FOR UNKNOWN INDICATION
     Route: 065
  11. NAPROXEN SOD [Concomitant]
     Indication: DRUG USE FOR UNKNOWN INDICATION
     Route: 065
  12. XANAX [Concomitant]
     Indication: DRUG USE FOR UNKNOWN INDICATION
     Route: 065

REACTIONS (7)
  - DEEP VEIN THROMBOSIS [None]
  - OEDEMA PERIPHERAL [None]
  - PAIN [None]
  - PAIN IN EXTREMITY [None]
  - PARAESTHESIA [None]
  - PULMONARY EMBOLISM [None]
  - THROMBOPHLEBITIS SUPERFICIAL [None]
